FAERS Safety Report 15904403 (Version 1)
Quarter: 2019Q1

REPORT INFORMATION
  Report Type: Spontaneous
  Country: LT (occurrence: LT)
  Receive Date: 20190204
  Receipt Date: 20190204
  Transmission Date: 20190417
  Serious: Yes (Hospitalization, Other)
  Sender: FDA-Public Use
  Company Number: LT-BRISTOL-MYERS SQUIBB COMPANY-BMS-2019-007420

PATIENT
  Age: 69 Year
  Sex: Male

DRUGS (1)
  1. WARFARIN SODIUM. [Suspect]
     Active Substance: WARFARIN SODIUM
     Indication: PRODUCT USED FOR UNKNOWN INDICATION
     Dosage: UNK
     Route: 065

REACTIONS (5)
  - Purpura [Unknown]
  - Skin necrosis [Not Recovered/Not Resolved]
  - Skin ulcer [Unknown]
  - Enterococcus test positive [Unknown]
  - Staphylococcal sepsis [Unknown]
